FAERS Safety Report 12545694 (Version 1)
Quarter: 2016Q3

REPORT INFORMATION
  Report Type: Spontaneous
  Country: US (occurrence: US)
  Receive Date: 20160711
  Receipt Date: 20160711
  Transmission Date: 20161109
  Serious: Yes (Other)
  Sender: FDA-Public Use
  Company Number: US-PFIZER INC-2016328586

PATIENT

DRUGS (12)
  1. ROPIVACAINE HYDROCHLORIDE. [Suspect]
     Active Substance: ROPIVACAINE HYDROCHLORIDE
     Indication: BREAKTHROUGH PAIN
     Dosage: 10 ML(0.1% ROPIVACAINE WITH 2 ?G/ML FENTANYL), STARTED AT 10 ML/HR
     Route: 064
  2. OXYCODONE [Suspect]
     Active Substance: OXYCODONE
     Indication: BREAKTHROUGH PAIN
     Dosage: 5-10 MG, AS NEEDED EVERY 4 HOURS
     Route: 064
  3. ACETAMINOPHEN\HYDROCODONE BITARTRATE [Suspect]
     Active Substance: ACETAMINOPHEN\HYDROCODONE BITARTRATE
     Dosage: 10 MG/325 MG, EVERY 4 HOURS (ONE TO TWO TABLETS)
     Route: 064
  4. FENTANYL CITRATE. [Suspect]
     Active Substance: FENTANYL CITRATE
     Dosage: 5 ML EVERY 20 MINUTES(0.1% ROPIVACAINE WITH 2 ?G/ML FENTANYL) WITH MAXIMUM OF 20 ML/HR
     Route: 064
  5. ACETAMINOPHEN\HYDROCODONE BITARTRATE [Suspect]
     Active Substance: ACETAMINOPHEN\HYDROCODONE BITARTRATE
     Indication: BREAKTHROUGH PAIN
     Dosage: 10 MG/325 MG, EVERY 4-6 HOURS
     Route: 064
  6. FENTANYL CITRATE. [Suspect]
     Active Substance: FENTANYL CITRATE
     Dosage: 8 ML/HR (0.1% ROPIVACAINE WITH 2 ?G/ML FENTANYL)
     Route: 064
  7. ROPIVACAINE HYDROCHLORIDE. [Suspect]
     Active Substance: ROPIVACAINE HYDROCHLORIDE
     Dosage: 5 ML EVERY 20 MINUTES(0.1% ROPIVACAINE WITH 2 ?G/ML FENTANYL) WITH MAXIMUM OF 20 ML/HR
     Route: 064
  8. OXYCODONE [Suspect]
     Active Substance: OXYCODONE
     Dosage: 10 MG, 3X/DAY
     Route: 064
  9. ROPIVACAINE HYDROCHLORIDE. [Suspect]
     Active Substance: ROPIVACAINE HYDROCHLORIDE
     Dosage: 8 ML/HR (0.1% ROPIVACAINE WITH 2 ?G/ML FENTANYL)
     Route: 064
  10. FENTANYL CITRATE. [Suspect]
     Active Substance: FENTANYL CITRATE
     Indication: BREAKTHROUGH PAIN
     Dosage: 12.5 MG/HR PATCHES
     Route: 064
  11. FENTANYL CITRATE. [Suspect]
     Active Substance: FENTANYL CITRATE
     Indication: BREAKTHROUGH PAIN
     Dosage: 10 ML(0.1% ROPIVACAINE WITH 2 ?G/ML FENTANYL),STARTED AT 10 ML/HR
     Route: 064
  12. BUPIVACAINE. [Concomitant]
     Active Substance: BUPIVACAINE
     Indication: EPIDURAL ANAESTHESIA
     Dosage: 1 ML OF 0.25%
     Route: 064

REACTIONS (2)
  - Premature baby [Unknown]
  - Exposure during pregnancy [Unknown]
